FAERS Safety Report 12460803 (Version 1)
Quarter: 2016Q2

REPORT INFORMATION
  Report Type: Not Available
  Country: US (occurrence: US)
  Receive Date: 20160613
  Receipt Date: 20160613
  Transmission Date: 20160815
  Serious: No
  Sender: FDA-Public Use
  Company Number: US-ANIPHARMA-2016-US-002706

PATIENT
  Age: 42 Year
  Sex: Female
  Weight: 81.65 kg

DRUGS (6)
  1. PROPRANOLOL EXTENDED RELEASE CAPSULES  (NON-SPECIFIC) [Suspect]
     Active Substance: PROPRANOLOL HYDROCHLORIDE
     Dosage: 240 MG DAILY
     Route: 048
     Dates: start: 2015, end: 20160125
  2. CYMBALTA [Concomitant]
     Active Substance: DULOXETINE HYDROCHLORIDE
     Dosage: 60 MG DAILY AT NIGHT
     Route: 048
  3. TYLENOL [Concomitant]
     Active Substance: ACETAMINOPHEN
     Dosage: 325 MG EVERY 8 HOURS
     Route: 048
  4. IBUPROFEN (NON-SPECIFIC) [Concomitant]
     Active Substance: IBUPROFEN
     Dosage: 400 MG EVERY 8 HOURS AS NEEDED
  5. CHANTIX [Suspect]
     Active Substance: VARENICLINE TARTRATE
     Dosage: 1 MG DAILY, SOMETIMES TWO MG
     Route: 065
     Dates: start: 201511
  6. ASPIRIN. [Concomitant]
     Active Substance: ASPIRIN
     Dosage: 325 MG ONCE DAILY
     Route: 048

REACTIONS (2)
  - Nicotine dependence [None]
  - Hypotension [Unknown]
